FAERS Safety Report 11127338 (Version 2)
Quarter: 2015Q2

REPORT INFORMATION
  Report Type: Report from Study
  Country: CN (occurrence: None)
  Receive Date: 20150519
  Receipt Date: 20150528
  Transmission Date: 20150821
  Serious: Yes (Other)
  Sender: FDA-Public Use
  Company Number: 8005824D

PATIENT
  Age: 30 Year
  Sex: Female

DRUGS (1)
  1. EUTHYROX 50 MCG (LEVOTHYROXINE SODIUM) (50 MICROGRAM, TABLET) (LEVOTHYROXINE SODIUM) [Suspect]
     Active Substance: LEVOTHYROXINE SODIUM
     Indication: HYPOTHYROIDISM
     Route: 048
     Dates: start: 20150119

REACTIONS (6)
  - Aspartate aminotransferase increased [None]
  - Abdominal discomfort [None]
  - Head discomfort [None]
  - Cardiac discomfort [None]
  - Alanine aminotransferase increased [None]
  - Liver injury [None]

NARRATIVE: CASE EVENT DATE: 20150119
